FAERS Safety Report 7823836-3 (Version None)
Quarter: 2011Q4

REPORT INFORMATION
  Report Type: 
  Country: None (occurrence: None)
  Receive Date: 20111019
  Receipt Date: 20111007
  Transmission Date: 20120403
  Serious: No
  Sender: FDA-Public Use
  Company Number: US-B.I. PHARMACEUTICALS,INC./RIDGEFIELD-2011-BP-23837BP

PATIENT
  Age: 2 Year
  Sex: Male

DRUGS (1)
  1. ZANTAC 150 [Suspect]
     Dosage: 150 MG
     Route: 048
     Dates: start: 20111007, end: 20111007

REACTIONS (1)
  - ACCIDENTAL DRUG INTAKE BY CHILD [None]
